FAERS Safety Report 7656158-4 (Version None)
Quarter: 2011Q3

REPORT INFORMATION
  Report Type: 
  Country: None (occurrence: None)
  Receive Date: 20110804
  Receipt Date: 20110728
  Transmission Date: 20111222
  Serious: Yes (Hospitalization)
  Sender: FDA-Public Use
  Company Number: FR-PFIZER INC-2011171763

PATIENT
  Age: 36 Year
  Sex: Male

DRUGS (7)
  1. DILTIAZEM HCL [Concomitant]
     Dosage: 90 MG, 2X/DAY
  2. SOLU-MEDROL [Suspect]
     Indication: LUPUS MYOCARDITIS
     Dosage: 500 MG, 1X/DAY
     Route: 042
     Dates: start: 20110708, end: 20110710
  3. PLAQUENIL [Concomitant]
     Dosage: 200 MG, 2X/DAY
  4. VITAMIN D [Concomitant]
  5. PREDNISONE [Concomitant]
     Dosage: 20 MG, 1X/DAY
  6. CALCIUM [Concomitant]
  7. PREDNISONE [Concomitant]
     Dosage: 40 MG, 1X/DAY
     Dates: start: 20110701

REACTIONS (2)
  - ERYTHEMA [None]
  - RASH [None]
